FAERS Safety Report 6495031-4 (Version None)
Quarter: 2009Q4

REPORT INFORMATION
  Report Type: 
  Country: None (occurrence: None)
  Receive Date: 20091214
  Receipt Date: 20090504
  Transmission Date: 20100525
  Serious: No
  Sender: FDA-Public Use
  Company Number: US-BRISTOL-MYERS SQUIBB COMPANY-14597314

PATIENT
  Age: 39 Year
  Sex: Female

DRUGS (2)
  1. ABILIFY [Suspect]
     Indication: MAJOR DEPRESSION
     Route: 048
     Dates: start: 20070101
  2. CELEXA [Suspect]
     Route: 048
     Dates: start: 20070101

REACTIONS (3)
  - HYPOAESTHESIA ORAL [None]
  - LIP DISORDER [None]
  - TREMOR [None]
